FAERS Safety Report 8204858-X (Version None)
Quarter: 2012Q1

REPORT INFORMATION
  Report Type: 
  Country: None (occurrence: None)
  Receive Date: 20120313
  Receipt Date: 20120228
  Transmission Date: 20120608
  Serious: Yes (Hospitalization)
  Sender: FDA-Public Use
  Company Number: MA-FRI-1000028724

PATIENT
  Age: 65 Year
  Sex: Male

DRUGS (3)
  1. FOSFOMYCIN [Suspect]
     Indication: SEPTIC SHOCK
     Dosage: 16 G
  2. COLISTIN SULFATE [Suspect]
     Indication: SEPTIC SHOCK
     Dosage: 3 MILLION IU
  3. IMIPENEM [Suspect]
     Indication: SEPTIC SHOCK
     Dosage: 2 G

REACTIONS (1)
  - NO ADVERSE EVENT [None]
